FAERS Safety Report 4509235-0 (Version None)
Quarter: 2004Q4

REPORT INFORMATION
  Report Type: 
  Country: None (occurrence: None)
  Receive Date: 20041025
  Receipt Date: 20040728
  Transmission Date: 20050328
  Serious: Yes (Other)
  Sender: FDA-Public Use
  Company Number: US-JNJFOC-20040701294

PATIENT
  Age: 46 Year
  Sex: Female
  Weight: 62.5964 kg

DRUGS (3)
  1. REMICADE [Suspect]
     Indication: COLITIS
     Dosage: INTRAVENOUS
     Route: 042
  2. FIBERCON (POLYCARBOPHIL CALCIUM) TABLETS [Concomitant]
  3. TOPROL XL (METOPROLOL SUCCINATE) TABLETS [Concomitant]

REACTIONS (1)
  - SYSTEMIC LUPUS ERYTHEMATOSUS [None]
